FAERS Safety Report 10465792 (Version 1)
Quarter: 2014Q3

REPORT INFORMATION
  Report Type: Report from Study
  Country: VE (occurrence: VE)
  Receive Date: 20140921
  Receipt Date: 20140921
  Transmission Date: 20150326
  Serious: Yes (Hospitalization)
  Sender: FDA-Public Use
  Company Number: PHHY2014VE122439

PATIENT
  Sex: Female

DRUGS (2)
  1. LEPONEX [Suspect]
     Active Substance: CLOZAPINE
  2. OLANZAPINE. [Suspect]
     Active Substance: OLANZAPINE

REACTIONS (3)
  - Tremor [Unknown]
  - Anxiety [Unknown]
  - Insomnia [Unknown]
